FAERS Safety Report 7513448-3 (Version None)
Quarter: 2011Q2

REPORT INFORMATION
  Report Type: 
  Country: None (occurrence: None)
  Receive Date: 20110531
  Receipt Date: 20110518
  Transmission Date: 20111010
  Serious: Yes (Death)
  Sender: FDA-Public Use
  Company Number: GR-UCBSA-033215

PATIENT
  Age: 35 Year
  Sex: Female

DRUGS (3)
  1. VIMPAT [Suspect]
     Indication: EPILEPSY
     Dosage: DOSE UP-TITRATED
     Route: 048
     Dates: start: 20101201
  2. VALPROIC ACID [Concomitant]
     Indication: EPILEPSY
     Dosage: TREATED FOR 20 YEARS
     Route: 048
     Dates: end: 20110412
  3. VIMPAT [Suspect]
     Route: 048
     Dates: end: 20110412

REACTIONS (3)
  - PULMONARY OEDEMA [None]
  - RENAL ARTERY OCCLUSION [None]
  - RENAL CANCER [None]
